FAERS Safety Report 8170973-2 (Version None)
Quarter: 2012Q1

REPORT INFORMATION
  Report Type: 
  Country: None (occurrence: None)
  Receive Date: 20120228
  Receipt Date: 20120221
  Transmission Date: 20120608
  Serious: Yes (Other)
  Sender: FDA-Public Use
  Company Number: US-PFIZER INC-2012046539

PATIENT
  Sex: Female

DRUGS (2)
  1. CELEBREX [Suspect]
     Dosage: 200 MG, 1X/DAY, 1 CAPSULE
  2. LIPITOR [Suspect]
     Dosage: 20GMG 1 TABLET, 1X/DAY

REACTIONS (1)
  - CARDIAC DISORDER [None]
